FAERS Safety Report 20007905 (Version 3)
Quarter: 2022Q1

REPORT INFORMATION
  Report Type: Spontaneous
  Country: JP (occurrence: JP)
  Receive Date: 20211028
  Receipt Date: 20220105
  Transmission Date: 20220423
  Serious: Yes (Disabling, Other)
  Sender: FDA-Public Use
  Company Number: JP-PFIZER INC-202101393525

PATIENT
  Age: 6 Decade
  Sex: Male

DRUGS (1)
  1. LYRICA [Suspect]
     Active Substance: PREGABALIN
     Indication: Cancer pain
     Dosage: 50 MG, TWICE A DAY (IN THE MORNING AND EVENING)
     Route: 048

REACTIONS (2)
  - Pulmonary toxicity [Not Recovered/Not Resolved]
  - Off label use [Unknown]
